FAERS Safety Report 12190806 (Version 1)
Quarter: 2016Q1

REPORT INFORMATION
  Report Type: Spontaneous
  Country: US (occurrence: None)
  Receive Date: 20160317
  Receipt Date: 20160317
  Transmission Date: 20160526
  Serious: Yes (Other)
  Sender: FDA-Public Use
  Company Number: None

PATIENT
  Age: 10 Year
  Sex: Female
  Weight: 45.36 kg

DRUGS (2)
  1. FLINTSTONE VITAMINS [Concomitant]
  2. PREDNISONE 10MG TABLET CVS PHARMACY [Suspect]
     Active Substance: PREDNISONE
     Indication: RASH
     Dosage: 10MG TABLET; 4 TABS X 4 DAYS; 3 TABS X 4 DAYS; 2 TABS X 4 DAYS; 1 TAB X 4 DAYS?
     Dates: start: 20151008

REACTIONS (10)
  - Dizziness [None]
  - Asthenia [None]
  - Educational problem [None]
  - Fatigue [None]
  - Swelling [None]
  - Peripheral swelling [None]
  - Local swelling [None]
  - Dermatitis contact [None]
  - Feeling abnormal [None]
  - Condition aggravated [None]

NARRATIVE: CASE EVENT DATE: 20151008
